FAERS Safety Report 5840784-9 (Version None)
Quarter: 2008Q3

REPORT INFORMATION
  Report Type: 
  Country: None (occurrence: None)
  Receive Date: 20080731
  Receipt Date: 20080508
  Transmission Date: 20090109
  Serious: No
  Sender: FDA-Public Use
  Company Number: US200805001803

PATIENT
  Age: 73 Year
  Sex: Female
  Weight: 112.5 kg

DRUGS (7)
  1. BYETTA [Suspect]
     Indication: TYPE 2 DIABETES MELLITUS
     Dosage: 5 UG, 2/D, SUBCUTANEOUS; 10 UG, 2/D, SUBCUTANEOUS
     Route: 058
     Dates: start: 20060601, end: 20060701
  2. BYETTA [Suspect]
     Indication: TYPE 2 DIABETES MELLITUS
     Dosage: 5 UG, 2/D, SUBCUTANEOUS; 10 UG, 2/D, SUBCUTANEOUS
     Route: 058
     Dates: start: 20060701
  3. . [Concomitant]
  4. METFORMIN HCL [Concomitant]
  5. ACTOS [Concomitant]
  6. XYZAL [Concomitant]
  7. SINGULAIR [Concomitant]

REACTIONS (8)
  - BLOOD GLUCOSE INCREASED [None]
  - DENTAL CARIES [None]
  - INJECTION SITE PRURITUS [None]
  - NAUSEA [None]
  - RHINORRHOEA [None]
  - SNEEZING [None]
  - VOMITING [None]
  - WEIGHT DECREASED [None]
